FAERS Safety Report 6964970-X (Version None)
Quarter: 2010Q3

REPORT INFORMATION
  Report Type: 
  Country: None (occurrence: None)
  Receive Date: 20100903
  Receipt Date: 20100826
  Transmission Date: 20110219
  Serious: Yes (Hospitalization, Other)
  Sender: FDA-Public Use
  Company Number: US-SANOFI-AVENTIS-2010SA051822

PATIENT
  Age: 62 Year
  Sex: Female

DRUGS (2)
  1. LANTUS [Suspect]
     Indication: DIABETES MELLITUS
     Dosage: DOSE:150 UNIT(S)
     Route: 058
     Dates: start: 20080101
  2. SOLOSTAR [Suspect]
     Indication: DIABETES MELLITUS
     Dates: start: 20080101

REACTIONS (5)
  - EYE SWELLING [None]
  - HYPERSENSITIVITY [None]
  - KNEE OPERATION [None]
  - SHOULDER OPERATION [None]
  - THROAT TIGHTNESS [None]
